FAERS Safety Report 10886595 (Version 2)
Quarter: 2015Q1

REPORT INFORMATION
  Report Type: Spontaneous
  Country: IT (occurrence: IT)
  Receive Date: 20150304
  Receipt Date: 20150331
  Transmission Date: 20150721
  Serious: Yes (Other)
  Sender: FDA-Public Use
  Company Number: IT-BAYER-2015-030401

PATIENT
  Age: 73 Year
  Sex: Male

DRUGS (4)
  1. CARDIOASPIRIN [Suspect]
     Active Substance: ASPIRIN
     Indication: PROPHYLAXIS
     Dosage: 100 MG, DAILY DOSE
     Route: 048
     Dates: start: 20100101
  2. ATENOLOL. [Concomitant]
     Active Substance: ATENOLOL
  3. ZYLORIC [Concomitant]
     Active Substance: ALLOPURINOL
  4. ACESISTEM [Concomitant]
     Active Substance: ENALAPRIL MALEATE\HYDROCHLOROTHIAZIDE

REACTIONS (1)
  - Bleeding varicose vein [Recovering/Resolving]

NARRATIVE: CASE EVENT DATE: 20150203
